FAERS Safety Report 6812811-3 (Version None)
Quarter: 2010Q3

REPORT INFORMATION
  Report Type: 
  Country: None (occurrence: None)
  Receive Date: 20100701
  Receipt Date: 20100623
  Transmission Date: 20110219
  Serious: Yes (Hospitalization)
  Sender: FDA-Public Use
  Company Number: B0663162A

PATIENT
  Sex: Male

DRUGS (1)
  1. NEODUPLAMOX [Suspect]
     Indication: TONSILLITIS
     Dosage: 3G PER DAY
     Route: 048
     Dates: start: 20100508, end: 20100513

REACTIONS (2)
  - DYSPNOEA [None]
  - ERYTHEMA MULTIFORME [None]
